FAERS Safety Report 13791549 (Version 4)
Quarter: 2019Q1

REPORT INFORMATION
  Report Type: Spontaneous
  Country: IT (occurrence: IT)
  Receive Date: 20170725
  Receipt Date: 20190225
  Transmission Date: 20190417
  Serious: Yes (Hospitalization)
  Sender: FDA-Public Use
  Company Number: IT-ABBVIE-17P-083-2047681-00

PATIENT
  Age: 69 Year
  Sex: Male

DRUGS (8)
  1. OMBITASVIR/PARITAPREVIR/RITONAVIR [Suspect]
     Active Substance: OMBITASVIR\PARITAPREVIR\RITONAVIR
     Indication: CHRONIC HEPATITIS C
     Route: 048
     Dates: start: 201504, end: 201510
  2. RIBAVIRIN. [Suspect]
     Active Substance: RIBAVIRIN
     Route: 048
     Dates: start: 201507, end: 201510
  3. VALSARTAN+HYDROCHOLORTHIAZIDE [Suspect]
     Active Substance: HYDROCHLOROTHIAZIDE\VALSARTAN
     Indication: ATRIAL FIBRILLATION
     Route: 065
     Dates: start: 2012, end: 201507
  4. FLECAINIDE [Interacting]
     Active Substance: FLECAINIDE
     Indication: ATRIAL FIBRILLATION
     Route: 065
     Dates: start: 2012
  5. RIBAVIRIN. [Suspect]
     Active Substance: RIBAVIRIN
     Indication: CHRONIC HEPATITIS C
     Route: 048
     Dates: start: 201504, end: 201507
  6. DASABUVIR [Interacting]
     Active Substance: DASABUVIR
     Indication: CHRONIC HEPATITIS C
     Route: 048
     Dates: start: 201504, end: 201510
  7. ASPIRIN. [Concomitant]
     Active Substance: ASPIRIN
     Indication: ATRIAL FIBRILLATION
     Dates: start: 2012
  8. VALSARTAN+HYDROCHOLORTHIAZIDE [Suspect]
     Active Substance: HYDROCHLOROTHIAZIDE\VALSARTAN
     Dosage: DOES REDUCED
     Route: 065
     Dates: start: 201507

REACTIONS (6)
  - Syncope [Unknown]
  - Syncope [Unknown]
  - Anaemia [Unknown]
  - Drug interaction [Unknown]
  - Bradycardia [Not Recovered/Not Resolved]
  - Cardiotoxicity [Unknown]

NARRATIVE: CASE EVENT DATE: 201507
